FAERS Safety Report 16005733 (Version 1)
Quarter: 2019Q1

REPORT INFORMATION
  Report Type: Spontaneous
  Country: CN (occurrence: CN)
  Receive Date: 20190226
  Receipt Date: 20190226
  Transmission Date: 20190418
  Serious: Yes (Hospitalization)
  Sender: FDA-Public Use
  Company Number: CN-ELI_LILLY_AND_COMPANY-CN201902009926

PATIENT
  Sex: Male

DRUGS (8)
  1. HUMALOG [Suspect]
     Active Substance: INSULIN LISPRO
     Indication: DIABETES MELLITUS
     Dosage: 18 U, EACH MORNING
     Route: 058
     Dates: start: 2017
  2. HUMALOG [Suspect]
     Active Substance: INSULIN LISPRO
     Dosage: 14 U, DAILY (AT NIGHT)
     Route: 058
  3. HUMALOG [Suspect]
     Active Substance: INSULIN LISPRO
     Dosage: 15 U, PRN (AT NIGHT)
     Route: 058
  4. HUMALOG [Suspect]
     Active Substance: INSULIN LISPRO
     Dosage: 18 U, DAILY (AT NIGHT)
     Route: 058
     Dates: start: 201812
  5. HUMALOG [Suspect]
     Active Substance: INSULIN LISPRO
     Dosage: 18 U, EACH MORNING
     Route: 058
  6. HUMALOG [Suspect]
     Active Substance: INSULIN LISPRO
     Dosage: 14 U, DAILY (AT NIGHT)
     Route: 058
     Dates: start: 2017
  7. HUMALOG [Suspect]
     Active Substance: INSULIN LISPRO
     Dosage: 20 U, EACH MORNING
     Route: 058
     Dates: start: 201812
  8. HUMALOG [Suspect]
     Active Substance: INSULIN LISPRO
     Dosage: 19 U, PRN (EACH MORNING)
     Route: 058

REACTIONS (3)
  - Incorrect dose administered [Unknown]
  - Product dose omission [Unknown]
  - Blood glucose increased [Recovered/Resolved]

NARRATIVE: CASE EVENT DATE: 201812
